FAERS Safety Report 5400465-2 (Version None)
Quarter: 2007Q3

REPORT INFORMATION
  Report Type: 
  Country: None (occurrence: None)
  Receive Date: 20070730
  Receipt Date: 20070719
  Transmission Date: 20080115
  Serious: Yes (Death, Life-Threatening)
  Sender: FDA-Public Use
  Company Number: JP-MERCK-0706USA05102

PATIENT
  Age: 62 Year
  Sex: Male
  Weight: 49 kg

DRUGS (3)
  1. HYZAAR [Suspect]
     Indication: HYPERTENSION
     Route: 048
     Dates: start: 20070529, end: 20070625
  2. EPADEL [Concomitant]
     Indication: HYPERLIPIDAEMIA
     Route: 048
     Dates: end: 20070713
  3. [THERAPY UNSPECIFIED] [Concomitant]
     Indication: HYPERTENSION
     Route: 065
     Dates: end: 20070528

REACTIONS (3)
  - LOSS OF CONSCIOUSNESS [None]
  - SUDDEN DEATH [None]
  - VISION BLURRED [None]
